FAERS Safety Report 8877802 (Version 1)
Quarter: 2012Q4

REPORT INFORMATION
  Report Type: 
  Country: US (occurrence: US)
  Receive Date: 20121025
  Receipt Date: 20121025
  Transmission Date: 20130627
  Serious: No
  Sender: FDA-Public Use
  Company Number: US-AMGEN-USASP2012020044

PATIENT
  Age: 58 Year
  Sex: Female
  Weight: 117.91 kg

DRUGS (9)
  1. ENBREL [Suspect]
     Indication: PSORIATIC ARTHROPATHY
     Dosage: 50 mg, qwk
     Route: 058
  2. METFORMIN [Concomitant]
     Dosage: 500 mg, UNK
  3. METHOTREXATE [Concomitant]
     Dosage: 2.5 mg, UNK
  4. FOLIC ACID [Concomitant]
     Dosage: 1 mg, UNK
  5. AMLODIPINE [Concomitant]
     Dosage: 2.5 mg, UNK
  6. PANTOPRAZOLE [Concomitant]
     Dosage: 20 mg, UNK
  7. SULINDAC [Concomitant]
     Dosage: 150 mg, UNK
  8. DIOVAN [Concomitant]
     Dosage: 40 mg, UNK
  9. HYDROCHLOROTHIAZIDE [Concomitant]
     Dosage: 12.5 mg, UNK

REACTIONS (5)
  - Arthralgia [Unknown]
  - Pain in extremity [Unknown]
  - Tendon pain [Unknown]
  - Gait disturbance [Unknown]
  - Drug ineffective [Unknown]
